FAERS Safety Report 17481768 (Version 1)
Quarter: 2020Q1

REPORT INFORMATION
  Report Type: Report from Study
  Country: US (occurrence: US)
  Receive Date: 20200302
  Receipt Date: 20200302
  Transmission Date: 20200409
  Serious: Yes (Death, Other)
  Sender: FDA-Public Use
  Company Number: US-ROCHE-1871861

PATIENT

DRUGS (3)
  1. RITUXIMAB. [Suspect]
     Active Substance: RITUXIMAB
     Dosage: (4 DOSES);
     Route: 042
  2. RITUXIMAB. [Suspect]
     Active Substance: RITUXIMAB
     Indication: NON-HODGKIN^S LYMPHOMA
     Dosage: (4 DOSES);
     Route: 042
  3. URELUMAB [Suspect]
     Active Substance: URELUMAB
     Indication: NON-HODGKIN^S LYMPHOMA
     Route: 065

REACTIONS (15)
  - Constipation [Unknown]
  - Sepsis [Fatal]
  - Diarrhoea [Unknown]
  - Anaemia [Unknown]
  - Nausea [Unknown]
  - Neutropenia [Unknown]
  - Leukopenia [Unknown]
  - Aspartate aminotransferase increased [Unknown]
  - Alanine aminotransferase increased [Unknown]
  - Infusion related reaction [Unknown]
  - Vomiting [Unknown]
  - Lipase increased [Unknown]
  - Fatigue [Unknown]
  - Thrombocytopenia [Unknown]
  - Lymphopenia [Unknown]
